FAERS Safety Report 22276328 (Version 2)
Quarter: 2024Q1

REPORT INFORMATION
  Report Type: Report from Study
  Country: US (occurrence: US)
  Receive Date: 20230503
  Receipt Date: 20240130
  Transmission Date: 20240410
  Serious: Yes (Other)
  Sender: FDA-Public Use
  Company Number: US-ABBVIE-4748586

PATIENT
  Age: 85 Year
  Sex: Male

DRUGS (3)
  1. LUPRON [Suspect]
     Active Substance: LEUPROLIDE ACETATE
     Indication: Product used for unknown indication
     Route: 065
  2. XTANDI [Suspect]
     Active Substance: ENZALUTAMIDE
     Indication: Neoplasm
     Dosage: STRENGTH- 40 MG
     Route: 048
     Dates: start: 202107, end: 202212
  3. XTANDI [Suspect]
     Active Substance: ENZALUTAMIDE
     Indication: Neoplasm
     Dosage: PM/BED TIME?STRENGTH- 40 MG
     Route: 048
     Dates: start: 20221201

REACTIONS (4)
  - Neoplasm [Unknown]
  - Fatigue [Not Recovered/Not Resolved]
  - Cognitive disorder [Unknown]
  - Decreased activity [Unknown]

NARRATIVE: CASE EVENT DATE: 20210701
